FAERS Safety Report 14138317 (Version 1)
Quarter: 2017Q4

REPORT INFORMATION
  Report Type: Report from Study
  Country: US (occurrence: US)
  Receive Date: 20171027
  Receipt Date: 20171027
  Transmission Date: 20180321
  Serious: Yes (Death, Other)
  Sender: FDA-Public Use
  Company Number: US-GILEAD-2017-0256997

PATIENT
  Age: 78 Year
  Sex: Female

DRUGS (7)
  1. ADCIRCA [Concomitant]
     Active Substance: TADALAFIL
     Indication: PULMONARY ARTERIAL HYPERTENSION
     Dates: start: 20140708
  2. POTASSIUM [Concomitant]
     Active Substance: POTASSIUM
  3. ADCIRCA [Concomitant]
     Active Substance: TADALAFIL
  4. ASA [Concomitant]
     Active Substance: ASPIRIN
  5. BUMETANIDE. [Concomitant]
     Active Substance: BUMETANIDE
  6. AMBRISENTAN [Suspect]
     Active Substance: AMBRISENTAN
     Indication: PULMONARY ARTERIAL HYPERTENSION
     Dosage: 5 MG, QD
     Route: 065
     Dates: start: 20140707, end: 20171022
  7. LASIX [Concomitant]
     Active Substance: FUROSEMIDE

REACTIONS (1)
  - Cardiac failure [Fatal]
